FAERS Safety Report 5260676-6 (Version None)
Quarter: 2007Q1

REPORT INFORMATION
  Report Type: 
  Country: None (occurrence: None)
  Receive Date: 20070309
  Receipt Date: 20061221
  Transmission Date: 20070707
  Serious: No
  Sender: FDA-Public Use
  Company Number: US-GLAXOSMITHKLINE-A0632279A

PATIENT
  Age: 44 Year

DRUGS (1)
  1. NICORETTE FRUIT CHILL OTC 2MG [Suspect]

REACTIONS (4)
  - DIARRHOEA [None]
  - HICCUPS [None]
  - STOMACH DISCOMFORT [None]
  - VOMITING [None]
